FAERS Safety Report 6813390-7 (Version None)
Quarter: 2010Q3

REPORT INFORMATION
  Report Type: 
  Country: None (occurrence: None)
  Receive Date: 20100701
  Receipt Date: 20100509
  Transmission Date: 20110219
  Serious: Yes (Hospitalization, Other)
  Sender: FDA-Public Use
  Company Number: AU-ROCHE-707398

PATIENT
  Age: 43 Year
  Sex: Male
  Weight: 102 kg

DRUGS (9)
  1. PEGASYS [Suspect]
     Indication: HEPATITIS C
     Route: 065
     Dates: start: 20071001
  2. PEGASYS [Suspect]
     Dosage: DOSE REDUCED IN WEEK 4
     Route: 065
  3. PEGASYS [Suspect]
     Dosage: DOSE: 0.3 ML
     Route: 065
  4. RIBAVIRIN [Suspect]
     Indication: HEPATITIS C
     Route: 065
     Dates: start: 20071001
  5. RIBAVIRIN [Suspect]
     Dosage: DOSE REDUCED IN WEEK 4
     Route: 065
     Dates: start: 20070101
  6. RIBAVIRIN [Suspect]
     Dosage: DOSE INCREASED AT WEEK 12
     Route: 065
     Dates: start: 20070101
  7. RIBAVIRIN [Suspect]
     Route: 065
  8. METHADONE [Concomitant]
  9. ZOLOFT [Concomitant]

REACTIONS (12)
  - CELLULITIS [None]
  - DEPRESSION [None]
  - DIZZINESS [None]
  - ENCEPHALOPATHY [None]
  - FALL [None]
  - HEPATIC CIRRHOSIS [None]
  - HEPATITIS C [None]
  - HERPES VIRUS INFECTION [None]
  - LETHARGY [None]
  - PNEUMONIA [None]
  - SPLENOMEGALY [None]
  - ULCER [None]
